FAERS Safety Report 8397681-7 (Version None)
Quarter: 2012Q2

REPORT INFORMATION
  Report Type: 
  Country: None (occurrence: None)
  Receive Date: 20120531
  Receipt Date: 20120524
  Transmission Date: 20120825
  Serious: No
  Sender: FDA-Public Use
  Company Number: US-PFIZER INC-2012015970

PATIENT
  Sex: Female

DRUGS (1)
  1. IBUPROFEN (ADVIL) [Suspect]
     Indication: ARTHROPATHY
     Dosage: UNK
     Dates: start: 19820101, end: 20120119

REACTIONS (1)
  - HYPOAESTHESIA ORAL [None]
